FAERS Safety Report 12320075 (Version 1)
Quarter: 2016Q2

REPORT INFORMATION
  Report Type: Spontaneous
  Country: US (occurrence: US)
  Receive Date: 20160429
  Receipt Date: 20160429
  Transmission Date: 20160815
  Serious: No
  Sender: FDA-Public Use
  Company Number: US-ROCHE-1603611

PATIENT
  Sex: Male
  Weight: 99.88 kg

DRUGS (1)
  1. ESBRIET [Suspect]
     Active Substance: PIRFENIDONE
     Indication: IDIOPATHIC PULMONARY FIBROSIS
     Route: 048
     Dates: start: 20150306

REACTIONS (6)
  - Nausea [Unknown]
  - Decreased appetite [Unknown]
  - Dysgeusia [Unknown]
  - Abdominal pain [Unknown]
  - Gastrointestinal pain [Recovering/Resolving]
  - Flatulence [Recovering/Resolving]
